FAERS Safety Report 4298788-6 (Version None)
Quarter: 2004Q1

REPORT INFORMATION
  Report Type: 
  Country: None (occurrence: None)
  Receive Date: 20040218
  Receipt Date: 20040107
  Transmission Date: 20041129
  Serious: Yes (Hospitalization)
  Sender: FDA-Public Use
  Company Number: WAES 0401USA00528

PATIENT
  Age: 53 Year
  Sex: Male

DRUGS (12)
  1. SLONNON [Concomitant]
     Indication: CEREBRAL INFARCTION
     Route: 042
     Dates: start: 20031218, end: 20031225
  2. ASPIRIN [Suspect]
     Indication: CEREBRAL INFARCTION
     Dates: start: 20031224, end: 20031226
  3. KREMEZIN [Concomitant]
     Indication: RENAL FAILURE
     Dates: start: 20010101, end: 20031226
  4. DIART [Concomitant]
     Indication: OEDEMA PERIPHERAL
     Route: 048
     Dates: start: 20030703, end: 20031226
  5. KALIMATE [Concomitant]
     Indication: HYPERKALAEMIA
     Route: 048
     Dates: start: 20030703, end: 20031226
  6. PEPCID [Suspect]
     Indication: GASTRITIS
     Route: 048
     Dates: start: 20031224, end: 20031225
  7. MUCOSTA [Concomitant]
     Indication: GASTRITIS
     Route: 048
     Dates: start: 20031224, end: 20031226
  8. PURSENNID [Concomitant]
     Route: 048
     Dates: start: 20030703
  9. SODIUM BICARBONATE [Concomitant]
     Indication: ACIDOSIS
     Route: 048
     Dates: start: 20030729
  10. SORBITOL [Concomitant]
     Indication: CONSTIPATION
     Route: 048
     Dates: start: 20030703, end: 20031226
  11. ACECOL [Concomitant]
     Indication: HYPERTENSION
     Route: 048
     Dates: start: 20011001, end: 20031226
  12. DIOVAN [Suspect]
     Indication: HYPERTENSION
     Dates: start: 20031224, end: 20031226

REACTIONS (7)
  - BLOOD CREATININE INCREASED [None]
  - CEREBRAL INFARCTION [None]
  - GASTRITIS [None]
  - HAEMODIALYSIS [None]
  - HYPERKALAEMIA [None]
  - RENAL IMPAIRMENT [None]
  - URINE OUTPUT DECREASED [None]
